FAERS Safety Report 6240045-2 (Version None)
Quarter: 2009Q2

REPORT INFORMATION
  Report Type: 
  Country: None (occurrence: None)
  Receive Date: 20090623
  Receipt Date: 20090618
  Transmission Date: 20091009
  Serious: Yes (Life-Threatening, Hospitalization)
  Sender: FDA-Public Use
  Company Number: CH-ROCHE-639222

PATIENT
  Age: 65 Year
  Sex: Male

DRUGS (13)
  1. ROCEPHIN [Suspect]
     Route: 040
     Dates: start: 20090509, end: 20090514
  2. CIPROFLOXACIN HYDROCHLORIDE [Suspect]
     Dosage: DRUG WITHDRAWN; FORM: FILM COATED TABLETS
     Route: 048
     Dates: start: 20090514, end: 20090515
  3. IMMUNE GLOBULIN INTRAVENOUS (HUMAN) [Suspect]
     Dosage: DRUG: REDIMUNE (IMMUNOGLOBULIN HUMAN NORMAL), FORM: INFUSION AMPOULES, VIALS/ BOTTLE
     Route: 041
     Dates: start: 20090518, end: 20090520
  4. DAFALGAN [Concomitant]
     Route: 048
  5. METOPROLOL TARTRATE [Concomitant]
     Route: 048
  6. LIQUAEMIN INJ [Concomitant]
     Route: 041
  7. SORTIS [Concomitant]
     Route: 048
     Dates: end: 20090517
  8. PLAVIX [Concomitant]
  9. NEURONTIN [Concomitant]
     Route: 048
     Dates: end: 20090517
  10. SINTROM [Concomitant]
     Dates: end: 20090517
  11. SAROTEN [Concomitant]
     Route: 048
     Dates: end: 20090517
  12. LISINOPRIL [Concomitant]
     Route: 048
     Dates: end: 20090517
  13. LANTUS [Concomitant]

REACTIONS (2)
  - RENAL FAILURE ACUTE [None]
  - TOXIC EPIDERMAL NECROLYSIS [None]
